FAERS Safety Report 5252925-5 (Version None)
Quarter: 2007Q1

REPORT INFORMATION
  Report Type: 
  Country: None (occurrence: None)
  Receive Date: 20070301
  Receipt Date: 20070216
  Transmission Date: 20070707
  Serious: Yes (Hospitalization, Other)
  Sender: FDA-Public Use
  Company Number: PHBS2007JP01137

PATIENT
  Age: 73 Year
  Sex: Female

DRUGS (4)
  1. NEORAL [Suspect]
     Indication: INTERSTITIAL LUNG DISEASE
     Dosage: 100 MG/D
     Route: 048
     Dates: start: 20060113, end: 20060322
  2. PREDNISOLONE [Suspect]
     Indication: INTERSTITIAL LUNG DISEASE
     Dosage: 30 MG/DAY
     Route: 065
     Dates: start: 20050701
  3. PREDNISOLONE [Suspect]
     Dosage: 12.5 MG/DAY
     Route: 065
     Dates: start: 20060608
  4. CYCLOPHOSPHAMIDE [Suspect]
     Indication: INTERSTITIAL LUNG DISEASE
     Route: 065
     Dates: start: 20060401, end: 20060523

REACTIONS (8)
  - ANOREXIA [None]
  - BLOOD CREATININE INCREASED [None]
  - BLOOD UREA INCREASED [None]
  - CYTOMEGALOVIRUS ANTIGEN POSITIVE [None]
  - CYTOMEGALOVIRUS INFECTION [None]
  - PANCYTOPENIA [None]
  - PYREXIA [None]
  - RENAL IMPAIRMENT [None]
